FAERS Safety Report 13550236 (Version 3)
Quarter: 2017Q3

REPORT INFORMATION
  Report Type: Spontaneous
  Country: US (occurrence: US)
  Receive Date: 20170516
  Receipt Date: 20170710
  Transmission Date: 20171127
  Serious: Yes (Other)
  Sender: FDA-Public Use
  Company Number: US-BAYER-2017-091560

PATIENT
  Age: 32 Year
  Sex: Female
  Weight: 74.38 kg

DRUGS (1)
  1. SKYLA [Suspect]
     Active Substance: LEVONORGESTREL
     Indication: CONTRACEPTION
     Dosage: 14 MCG/24HR, CONT
     Route: 015
     Dates: start: 20160303

REACTIONS (8)
  - Pelvic pain [None]
  - Ectopic pregnancy with contraceptive device [None]
  - Muscle spasms [None]
  - Arthralgia [None]
  - Pain in extremity [None]
  - Pelvic pain [None]
  - Drug ineffective [None]
  - Uterine haemorrhage [None]

NARRATIVE: CASE EVENT DATE: 201704
